FAERS Safety Report 18689083 (Version 1)
Quarter: 2020Q4

REPORT INFORMATION
  Report Type: Spontaneous
  Country: IL (occurrence: IL)
  Receive Date: 20201231
  Receipt Date: 20201231
  Transmission Date: 20210114
  Serious: Yes (Other)
  Sender: FDA-Public Use
  Company Number: IL-AMGEN-ISRSP2020210909

PATIENT
  Age: 83 Year
  Sex: Female

DRUGS (7)
  1. VECTOR PLUS [Concomitant]
     Dosage: 160/12.5
  2. ALLORIL [Concomitant]
     Active Substance: ALLOPURINOL
  3. LORIVAN [Concomitant]
     Active Substance: LORAZEPAM
     Dosage: UNK
  4. PROLIA [Suspect]
     Active Substance: DENOSUMAB
     Indication: OSTEOPOROSIS
     Dosage: UNK
     Route: 065
  5. MICROPIRIN [Concomitant]
     Active Substance: ASPIRIN
  6. EXFORGE [Concomitant]
     Active Substance: AMLODIPINE BESYLATE\VALSARTAN
     Dosage: 160/10
  7. CALCIUM + VITAMIN D [CALCIUM CARBONATE;COLECALCIFEROL] [Concomitant]
     Active Substance: CALCIUM CARBONATE\CHOLECALCIFEROL

REACTIONS (1)
  - Pancreatic neuroendocrine tumour [Unknown]
